FAERS Safety Report 18005834 (Version 6)
Quarter: 2020Q4

REPORT INFORMATION
  Report Type: Spontaneous
  Country: JP (occurrence: JP)
  Receive Date: 20200709
  Receipt Date: 20201228
  Transmission Date: 20210113
  Serious: Yes (Disabling, Other)
  Sender: FDA-Public Use
  Company Number: NVSJ2020JP006331

PATIENT
  Age: 52 Year
  Sex: Female

DRUGS (4)
  1. BEOVU [Suspect]
     Active Substance: BROLUCIZUMAB-DBLL
     Indication: AGE-RELATED MACULAR DEGENERATION
     Dosage: 6 MG, QD
     Route: 031
     Dates: start: 20200616, end: 20200616
  2. EYLEA [Suspect]
     Active Substance: AFLIBERCEPT
     Indication: AGE-RELATED MACULAR DEGENERATION
     Dosage: 0.05 ML, QMO, TOTAL 29 TIMES
     Route: 031
     Dates: start: 2017, end: 2020
  3. EYLEA [Suspect]
     Active Substance: AFLIBERCEPT
     Dosage: UNKNOWN
     Route: 031
     Dates: start: 20200812, end: 20200812
  4. BEOVU [Suspect]
     Active Substance: BROLUCIZUMAB-DBLL
     Indication: POLYPOIDAL CHOROIDAL VASCULOPATHY

REACTIONS (12)
  - Keratic precipitates [Recovered/Resolved]
  - Vitreous opacities [Recovered/Resolved]
  - Vision blurred [Recovered/Resolved]
  - Retinal perivascular sheathing [Recovered/Resolved]
  - Vitreal cells [Recovered/Resolved]
  - Anterior chamber cell [Recovered/Resolved]
  - Vitreous floaters [Not Recovered/Not Resolved]
  - Retinal haemorrhage [Recovered/Resolved]
  - Retinal vasculitis [Recovered/Resolved with Sequelae]
  - Optic neuritis [Recovered/Resolved]
  - Blindness transient [Recovered/Resolved]
  - Condition aggravated [Unknown]

NARRATIVE: CASE EVENT DATE: 20200628
